FAERS Safety Report 24250870 (Version 2)
Quarter: 2024Q3

REPORT INFORMATION
  Report Type: Report from Study
  Country: GB (occurrence: GB)
  Receive Date: 20240826
  Receipt Date: 20240921
  Transmission Date: 20241016
  Serious: Yes (Death)
  Sender: TEVA
  Company Number: GB-TEVA-VS-3236326

PATIENT

DRUGS (2)
  1. FLUDARABINE [Suspect]
     Active Substance: FLUDARABINE PHOSPHATE
     Indication: B-cell type acute leukaemia
     Route: 065
  2. TISAGENLECLEUCEL [Concomitant]
     Active Substance: TISAGENLECLEUCEL
     Indication: B-cell type acute leukaemia
     Route: 065

REACTIONS (1)
  - Neurotoxicity [Fatal]
